FAERS Safety Report 16389914 (Version 1)
Quarter: 2019Q2

REPORT INFORMATION
  Report Type: Report from Study
  Country: IT (occurrence: IT)
  Receive Date: 20190604
  Receipt Date: 20190604
  Transmission Date: 20190711
  Serious: Yes (Other)
  Sender: FDA-Public Use
  Company Number: IT-MYLANLABS-2019M1051781

PATIENT
  Age: 85 Year
  Sex: Female

DRUGS (1)
  1. ALENDRONATE [Suspect]
     Active Substance: ALENDRONATE SODIUM
     Indication: OSTEOPOROSIS
     Dosage: 70 MILLIGRAM, QW
     Route: 048
     Dates: start: 20020101, end: 20111231

REACTIONS (6)
  - Granuloma [Recovered/Resolved]
  - Osteonecrosis of jaw [Recovered/Resolved]
  - Infection [Recovered/Resolved]
  - Inflammation [Recovered/Resolved]
  - Osteomyelitis acute [Recovered/Resolved]
  - Tooth abscess [Recovered/Resolved]

NARRATIVE: CASE EVENT DATE: 20150929
